FAERS Safety Report 11856021 (Version 2)
Quarter: 2016Q1

REPORT INFORMATION
  Report Type: Spontaneous
  Country: US (occurrence: US)
  Receive Date: 20151221
  Receipt Date: 20160224
  Transmission Date: 20160526
  Serious: Yes (Other)
  Sender: FDA-Public Use
  Company Number: US-BAYER-2015-489918

PATIENT
  Age: 66 Year
  Sex: Male
  Weight: 136.5 kg

DRUGS (2)
  1. AFRIN SEVERE CONGESTION [Suspect]
     Active Substance: OXYMETAZOLINE HYDROCHLORIDE
     Indication: NASAL CONGESTION
     Dosage: 2 DF, QD
     Route: 045
     Dates: start: 1990
  2. INSULIN [Concomitant]
     Active Substance: INSULIN NOS
     Dosage: UNK

REACTIONS (3)
  - Product use issue [None]
  - Drug dependence [None]
  - Product container issue [None]
